FAERS Safety Report 18410916 (Version 2)
Quarter: 2020Q4

REPORT INFORMATION
  Report Type: Report from Study
  Country: US (occurrence: US)
  Receive Date: 20201021
  Receipt Date: 20201210
  Transmission Date: 20210114
  Serious: Yes (Other)
  Sender: FDA-Public Use
  Company Number: US-PUMA BIOTECHNOLOGY, LTD.-2019US010959

PATIENT

DRUGS (9)
  1. LOMOTIL [Concomitant]
     Active Substance: ATROPINE SULFATE\DIPHENOXYLATE HYDROCHLORIDE
     Indication: PRODUCT USED FOR UNKNOWN INDICATION
  2. NERLYNX [Suspect]
     Active Substance: NERATINIB
     Dosage: 160 MG (4 TABLETS), DAILY
     Route: 048
  3. IMODIUM [Concomitant]
     Active Substance: LOPERAMIDE HYDROCHLORIDE
     Indication: PROPHYLAXIS AGAINST DIARRHOEA
     Dosage: UNK, TID
     Dates: start: 20191030, end: 2019
  4. IMODIUM [Concomitant]
     Active Substance: LOPERAMIDE HYDROCHLORIDE
     Dosage: 2 MG, DAILY
  5. NERLYNX [Suspect]
     Active Substance: NERATINIB
     Dosage: 120 MG (3 TABLETS), DAILY
     Route: 048
     Dates: start: 20191217
  6. NERLYNX [Suspect]
     Active Substance: NERATINIB
     Dosage: 240 MG (6 TABLETS), DAILY
     Route: 048
     Dates: start: 20200209, end: 202011
  7. NERLYNX [Suspect]
     Active Substance: NERATINIB
     Indication: BREAST CANCER FEMALE
     Dosage: 120 MG, (3 TABLETS) DAILY
     Route: 048
     Dates: start: 20191030, end: 20191107
  8. NERLYNX [Suspect]
     Active Substance: NERATINIB
     Indication: HER2 POSITIVE BREAST CANCER
     Dosage: 80 MG (2 TABLETS), DAILY
     Route: 048
     Dates: start: 20191113, end: 20191216
  9. NERLYNX [Suspect]
     Active Substance: NERATINIB
     Dosage: 200 MG (5 TABLETS), DAILY
     Route: 048
     Dates: start: 202001, end: 20200208

REACTIONS (11)
  - Hepatic enzyme increased [Recovered/Resolved]
  - Dizziness [Recovered/Resolved]
  - Fatigue [Recovered/Resolved]
  - Emergency care [Unknown]
  - Impaired quality of life [Unknown]
  - Stomatitis [Recovered/Resolved]
  - Rash [Recovered/Resolved]
  - Acne [Recovered/Resolved]
  - Abdominal pain upper [Recovered/Resolved]
  - Diarrhoea [Recovered/Resolved]
  - Drug titration [Unknown]

NARRATIVE: CASE EVENT DATE: 20191030
